FAERS Safety Report 13083059 (Version 1)
Quarter: 2017Q1

REPORT INFORMATION
  Report Type: Other
  Country: US (occurrence: US)
  Receive Date: 20170104
  Receipt Date: 20170104
  Transmission Date: 20170428
  Serious: No
  Sender: FDA-Public Use
  Company Number: US-LUPIN PHARMACEUTICALS INC.-2016-05110

PATIENT
  Sex: Male
  Weight: 77.11 kg

DRUGS (3)
  1. DULOXETINE. [Suspect]
     Active Substance: DULOXETINE
     Route: 048
  2. TOPIRAMATE. [Suspect]
     Active Substance: TOPIRAMATE
     Indication: DIABETIC NEUROPATHY
     Dosage: AT BEDTIME
     Route: 048
     Dates: start: 20160531, end: 201606
  3. DULOXETINE. [Suspect]
     Active Substance: DULOXETINE
     Indication: DIABETIC NEUROPATHY
     Route: 048
     Dates: start: 20160714

REACTIONS (1)
  - Drug ineffective [Unknown]
